FAERS Safety Report 15957029 (Version 1)
Quarter: 2019Q1

REPORT INFORMATION
  Report Type: Spontaneous
  Country: GB (occurrence: GB)
  Receive Date: 20190213
  Receipt Date: 20190213
  Transmission Date: 20190417
  Serious: Yes (Other)
  Sender: FDA-Public Use
  Company Number: GB-MYLANLABS-2019M1012480

PATIENT
  Age: 51 Year
  Sex: Female

DRUGS (8)
  1. MIRTAZAPINE. [Concomitant]
     Active Substance: MIRTAZAPINE
     Indication: DEPRESSION
     Dosage: 45 MILLIGRAM
     Route: 048
     Dates: start: 20180720
  2. ZOPICLONE [Concomitant]
     Active Substance: ZOPICLONE
     Dosage: UNK
  3. VITAMIN B [Concomitant]
     Active Substance: VITAMIN B
     Indication: ALCOHOLISM
     Dosage: 2 DOSAGE FORM, QD
     Route: 048
     Dates: start: 20180712
  4. QUETIAPINE. [Suspect]
     Active Substance: QUETIAPINE
     Indication: PRODUCT USED FOR UNKNOWN INDICATION
     Dosage: 300 MILLIGRAM
     Route: 048
     Dates: start: 20180720
  5. PREGABALIN. [Concomitant]
     Active Substance: PREGABALIN
     Indication: ANXIETY
     Dosage: 50 MILLIGRAM
     Route: 048
     Dates: start: 20180725
  6. ADCAL                              /07357001/ [Concomitant]
     Active Substance: CALCIUM CARBONATE
     Dosage: UNK
  7. FOLIC ACID. [Concomitant]
     Active Substance: FOLIC ACID
     Indication: FOLATE DEFICIENCY
     Dosage: 5 MILLIGRAM
     Route: 048
     Dates: start: 20180712
  8. THIAMINE. [Concomitant]
     Active Substance: THIAMINE
     Indication: ALCOHOLISM
     Dosage: 50 MILLIGRAM
     Route: 048
     Dates: start: 20180712

REACTIONS (2)
  - Urinary hesitation [Recovered/Resolved]
  - Urinary retention [Recovered/Resolved]

NARRATIVE: CASE EVENT DATE: 20180713
